FAERS Safety Report 9913270 (Version 1)
Quarter: 2014Q1

REPORT INFORMATION
  Report Type: Spontaneous
  Country: US (occurrence: US)
  Receive Date: 20140220
  Receipt Date: 20140220
  Transmission Date: 20141002
  Serious: Yes (Other)
  Sender: FDA-Public Use
  Company Number: US-ASTRAZENECA-2014SE10543

PATIENT
  Age: 91 Year
  Sex: Female
  Weight: 49.9 kg

DRUGS (5)
  1. FASLODEX [Suspect]
     Indication: BREAST CANCER FEMALE
     Route: 030
     Dates: start: 201308
  2. FASLODEX [Suspect]
     Indication: BREAST CANCER FEMALE
     Route: 030
  3. FASLODEX [Suspect]
     Indication: BREAST CANCER FEMALE
     Route: 030
     Dates: start: 201401
  4. SYNTHROID [Concomitant]
     Indication: HYPOTHYROIDISM
  5. LUXIC [Concomitant]
     Indication: PRURITUS
     Dosage: FOAM

REACTIONS (12)
  - Suicidal ideation [Recovered/Resolved]
  - Abdominal pain lower [Not Recovered/Not Resolved]
  - Arthralgia [Recovering/Resolving]
  - Sleep disorder [Unknown]
  - Pain [Recovering/Resolving]
  - Gait disturbance [Recovering/Resolving]
  - Impaired healing [Not Recovered/Not Resolved]
  - Pruritus [Not Recovered/Not Resolved]
  - Asthenia [Unknown]
  - Rash [Not Recovered/Not Resolved]
  - Nausea [Unknown]
  - Headache [Unknown]
